FAERS Safety Report 9357005 (Version 3)
Quarter: 2013Q3

REPORT INFORMATION
  Report Type: Spontaneous
  Country: CH (occurrence: CH)
  Receive Date: 20130620
  Receipt Date: 20130708
  Transmission Date: 20140515
  Serious: Yes (Disabling, Other)
  Sender: FDA-Public Use
  Company Number: CH-ROCHE-1236629

PATIENT
  Age: 64 Year
  Sex: Female
  Weight: 64 kg

DRUGS (12)
  1. MABTHERA [Suspect]
     Indication: NON-HODGKIN^S LYMPHOMA
     Dosage: SECOND THERAPY RECEIVED ON 16/APR/2009
     Route: 041
     Dates: start: 20090401, end: 20090508
  2. MABTHERA [Suspect]
     Route: 041
     Dates: start: 20130401
  3. ENDOXAN [Suspect]
     Indication: NON-HODGKIN^S LYMPHOMA
     Route: 041
     Dates: start: 20090402, end: 20090509
  4. ENDOXAN [Suspect]
     Route: 041
     Dates: start: 20130402
  5. ONCOVIN [Suspect]
     Indication: NON-HODGKIN^S LYMPHOMA
     Dosage: SECOND THERAPY WAS RECEIVED ON 17/APR/2009
     Route: 040
     Dates: start: 20090402, end: 20090509
  6. ONCOVIN [Suspect]
     Route: 040
     Dates: start: 20130402
  7. NEULASTA [Suspect]
     Indication: NON-HODGKIN^S LYMPHOMA
     Route: 058
     Dates: start: 20130403, end: 20130403
  8. NEULASTA [Suspect]
     Dosage: FOR ONE DAY
     Route: 058
     Dates: end: 20130403
  9. PREDNISONE [Concomitant]
     Route: 048
     Dates: start: 20090402, end: 20090406
  10. PREDNISONE [Concomitant]
     Dosage: FOR 5 DAYS
     Route: 048
     Dates: start: 20130402
  11. ADRIBLASTIN [Concomitant]
     Indication: NON-HODGKIN^S LYMPHOMA
     Dosage: SECOND THERAPY WAS RECEIVED ON 17/APR/2009
     Route: 040
     Dates: start: 20090402, end: 20090509
  12. ADRIBLASTIN [Concomitant]
     Route: 040
     Dates: start: 20130402

REACTIONS (5)
  - Pain in extremity [Recovered/Resolved with Sequelae]
  - Polyneuropathy [Recovered/Resolved with Sequelae]
  - Dizziness [Recovered/Resolved with Sequelae]
  - Gait disturbance [Recovered/Resolved with Sequelae]
  - Hypoaesthesia [Recovered/Resolved with Sequelae]
